FAERS Safety Report 15283012 (Version 1)
Quarter: 2018Q3

REPORT INFORMATION
  Report Type: Spontaneous
  Country: AT (occurrence: AT)
  Receive Date: 20180816
  Receipt Date: 20180816
  Transmission Date: 20181010
  Serious: Yes (Death, Life-Threatening, Hospitalization, Other)
  Sender: FDA-Public Use
  Company Number: AT-TEVA-2018-AT-940677

PATIENT
  Age: 74 Year
  Sex: Male

DRUGS (7)
  1. LANOLEPT [Suspect]
     Active Substance: CLOZAPINE
     Route: 048
     Dates: start: 20180601
  2. THROMBO ASS [Suspect]
     Active Substance: ASPIRIN
     Route: 065
  3. ZYPREXA [Suspect]
     Active Substance: OLANZAPINE
     Dosage: ZYPREXA 30 MG HAD BEEN REDUCED TO 5 MG OR 10 MG
     Route: 065
  4. ENALAPRIL [Suspect]
     Active Substance: ENALAPRIL
     Route: 065
  5. HALDOL DEPOT [Suspect]
     Active Substance: HALOPERIDOL DECANOATE
     Route: 065
  6. LANOLEPT [Suspect]
     Active Substance: CLOZAPINE
     Indication: SCHIZOPHRENIA
     Dosage: DOSE INCREASED GRADUALLY
     Route: 048
     Dates: start: 201805
  7. ZYPREXA [Suspect]
     Active Substance: OLANZAPINE
     Route: 065

REACTIONS (5)
  - Sepsis [Fatal]
  - Intensive care [Unknown]
  - Agranulocytosis [Not Recovered/Not Resolved]
  - General physical health deterioration [Not Recovered/Not Resolved]
  - Septic shock [Unknown]

NARRATIVE: CASE EVENT DATE: 20180601
